FAERS Safety Report 6724055-4 (Version None)
Quarter: 2010Q2

REPORT INFORMATION
  Report Type: 
  Country: None (occurrence: None)
  Receive Date: 20100513
  Receipt Date: 20100510
  Transmission Date: 20101027
  Serious: Yes (Hospitalization)
  Sender: FDA-Public Use
  Company Number: B0652356A

PATIENT
  Age: 22 Year
  Sex: Female

DRUGS (6)
  1. DARAPRIM [Suspect]
     Indication: DRUG USE FOR UNKNOWN INDICATION
     Route: 048
     Dates: start: 20091120, end: 20100318
  2. REYATAZ [Suspect]
     Indication: HIV INFECTION
     Dosage: 400MG PER DAY
     Route: 048
     Dates: start: 20091120, end: 20100318
  3. TRUVADA [Suspect]
     Indication: HIV INFECTION
     Route: 048
     Dates: start: 20091120, end: 20100318
  4. SULFADIAZINA [Suspect]
     Indication: CEREBRAL TOXOPLASMOSIS
     Dosage: 1G FOUR TIMES PER DAY
     Route: 048
     Dates: start: 20091120, end: 20100318
  5. DEXAMETASONA [Suspect]
     Indication: DRUG USE FOR UNKNOWN INDICATION
     Dosage: 6MG PER DAY
     Route: 065
     Dates: start: 20091120, end: 20100318
  6. HIDROSALURETIL [Suspect]
     Indication: DRUG USE FOR UNKNOWN INDICATION
     Dosage: 50MG PER DAY
     Route: 048
     Dates: start: 20091120, end: 20100318

REACTIONS (2)
  - CALCULUS URINARY [None]
  - TUBULOINTERSTITIAL NEPHRITIS [None]
